FAERS Safety Report 17031100 (Version 1)
Quarter: 2019Q4

REPORT INFORMATION
  Report Type: Spontaneous
  Country: US (occurrence: US)
  Receive Date: 20191011
  Receipt Date: 20191011
  Transmission Date: 20200122
  Serious: Yes (Hospitalization)
  Sender: FDA-Public Use
  Company Number: None

PATIENT
  Sex: Female
  Weight: 106 kg

DRUGS (1)
  1. VANCOMYCIN 5GM HOSPIRA [Suspect]
     Active Substance: VANCOMYCIN
     Indication: OSTEOMYELITIS
     Dosage: ?          OTHER DOSE:1.6 GM;OTHER FREQUENCY:EVERY 2WK;?
     Route: 042
     Dates: start: 20190828, end: 20190903

REACTIONS (1)
  - Acute kidney injury [None]
